FAERS Safety Report 8957209 (Version 3)
Quarter: 2013Q1

REPORT INFORMATION
  Report Type: Spontaneous
  Country: GB (occurrence: GB)
  Receive Date: 20121210
  Receipt Date: 20130205
  Transmission Date: 20140127
  Serious: Yes (Hospitalization, Other)
  Sender: FDA-Public Use
  Company Number: GB-ROCHE-1166734

PATIENT
  Age: 58 Year
  Sex: Female
  Weight: 74.6 kg

DRUGS (4)
  1. XOLAIR [Suspect]
     Indication: ASTHMA
     Route: 058
     Dates: start: 20111030
  2. SYMBICORT [Concomitant]
     Dosage: 220/6
     Route: 065
  3. KLARICID [Concomitant]
     Route: 065
     Dates: start: 201206
  4. ITRACONAZOLE [Concomitant]
     Route: 065
     Dates: start: 201211

REACTIONS (3)
  - Chest pain [Recovered/Resolved with Sequelae]
  - Electrocardiogram ST segment depression [Not Recovered/Not Resolved]
  - Fatigue [Recovered/Resolved]
